FAERS Safety Report 12799107 (Version 1)
Quarter: 2016Q3

REPORT INFORMATION
  Report Type: Report from Study
  Country: US (occurrence: US)
  Receive Date: 20160930
  Receipt Date: 20160930
  Transmission Date: 20161109
  Serious: Yes (Other)
  Sender: FDA-Public Use
  Company Number: US-AMGEN-USASL2016133616

PATIENT

DRUGS (1)
  1. KYPROLIS [Suspect]
     Active Substance: CARFILZOMIB
     Indication: PRODUCT USED FOR UNKNOWN INDICATION
     Dosage: UNK
     Route: 065

REACTIONS (8)
  - Polyneuropathy [Unknown]
  - Adjustment disorder with mixed anxiety and depressed mood [Unknown]
  - End stage renal disease [Unknown]
  - Deficiency anaemia [Unknown]
  - Fatigue [Unknown]
  - Type 2 diabetes mellitus [Unknown]
  - Generalised anxiety disorder [Unknown]
  - Osteoarthritis [Unknown]

NARRATIVE: CASE EVENT DATE: 20160214
